FAERS Safety Report 8423540-7 (Version None)
Quarter: 2012Q2

REPORT INFORMATION
  Report Type: 
  Country: None (occurrence: None)
  Receive Date: 20120608
  Receipt Date: 20120531
  Transmission Date: 20120825
  Serious: Yes (Other)
  Sender: FDA-Public Use
  Company Number: US-ABBOTT-12P-163-0941553-00

PATIENT
  Sex: Female
  Weight: 108.96 kg

DRUGS (2)
  1. SYNTHROID [Suspect]
     Indication: HYPOTHYROIDISM
     Route: 048
  2. SYNTHROID [Suspect]
     Indication: HYPOTHYROIDISM

REACTIONS (5)
  - INSOMNIA [None]
  - MALAISE [None]
  - ALOPECIA [None]
  - OSTEOARTHRITIS [None]
  - PRURITUS [None]
